FAERS Safety Report 6280044-8 (Version None)
Quarter: 2009Q3

REPORT INFORMATION
  Report Type: 
  Country: None (occurrence: None)
  Receive Date: 20090723
  Receipt Date: 20090714
  Transmission Date: 20100115
  Serious: Yes (Life-Threatening)
  Sender: FDA-Public Use
  Company Number: LB-SANOFI-SYNTHELABO-A01200907560

PATIENT
  Sex: Female

DRUGS (3)
  1. LEUCOVORIN CALCIUM [Concomitant]
     Indication: COLON CANCER
     Dosage: UNK
     Route: 041
  2. FLUOROURACIL [Concomitant]
     Indication: COLON CANCER
     Dosage: UNK
     Route: 041
  3. ELOXATIN [Suspect]
     Indication: COLON CANCER
     Route: 041

REACTIONS (2)
  - COMA [None]
  - POLYNEUROPATHY [None]
